FAERS Safety Report 17994915 (Version 2)
Quarter: 2020Q4

REPORT INFORMATION
  Report Type: Spontaneous
  Country: US (occurrence: US)
  Receive Date: 20200708
  Receipt Date: 20201120
  Transmission Date: 20210113
  Serious: Yes (Other)
  Sender: FDA-Public Use
  Company Number: US-UCBSA-2020026166

PATIENT
  Age: 82 Year
  Sex: Male

DRUGS (13)
  1. FYCOMPA [Interacting]
     Active Substance: PERAMPANEL
     Dosage: 7 MILLIGRAM, ONCE DAILY (QD)
     Dates: start: 20200207, end: 20200220
  2. KEPPRA XR [Suspect]
     Active Substance: LEVETIRACETAM
     Dosage: DAILY DOSE OF 1900MG
     Dates: start: 2020
  3. FYCOMPA [Interacting]
     Active Substance: PERAMPANEL
     Dosage: 4 MILLIGRAM, ONCE DAILY (QD)
     Dates: start: 20191201, end: 20191207
  4. FYCOMPA [Interacting]
     Active Substance: PERAMPANEL
     Dosage: 8 MILLIGRAM, ONCE DAILY (QD)
     Dates: start: 20200221
  5. DILANTIN [Concomitant]
     Active Substance: PHENYTOIN
     Indication: PRODUCT USED FOR UNKNOWN INDICATION
     Dosage: 200 MILLIGRAM, ONCE DAILY (QD)
     Dates: start: 1948
  6. APTIOM [Interacting]
     Active Substance: ESLICARBAZEPINE ACETATE
     Indication: PARTIAL SEIZURES
     Dosage: 50 MILLIGRAM, 2X/DAY (BID)
  7. APTIOM [Interacting]
     Active Substance: ESLICARBAZEPINE ACETATE
     Dosage: DOSE UNK, SLOW UPTITRATION
  8. APTIOM [Interacting]
     Active Substance: ESLICARBAZEPINE ACETATE
     Dosage: 700 MILLIGRAM, ONCE DAILY (QD)
  9. FYCOMPA [Interacting]
     Active Substance: PERAMPANEL
     Indication: PARTIAL SEIZURES
     Dosage: 2 MILLIGRAM, ONCE DAILY (QD)
     Dates: start: 20191123, end: 20191130
  10. KEPPRA XR [Suspect]
     Active Substance: LEVETIRACETAM
     Indication: SEIZURE
     Dosage: 750 MILLIGRAM, 2X/DAY (BID)
  11. APTIOM [Interacting]
     Active Substance: ESLICARBAZEPINE ACETATE
     Dosage: DOSE UNK, SLOW DOWN TITRATION
  12. APTIOM [Interacting]
     Active Substance: ESLICARBAZEPINE ACETATE
     Dosage: 200 MILLIGRAM, ONCE DAILY (QD)
  13. FYCOMPA [Interacting]
     Active Substance: PERAMPANEL
     Dosage: 6 MILLIGRAM, ONCE DAILY (QD)
     Dates: start: 20191208, end: 20200206

REACTIONS (5)
  - Balance disorder [Not Recovered/Not Resolved]
  - Product use issue [Unknown]
  - Partial seizures [Recovered/Resolved]
  - Constipation [Not Recovered/Not Resolved]
  - Drug interaction [Unknown]

NARRATIVE: CASE EVENT DATE: 20200528
